FAERS Safety Report 14103727 (Version 1)
Quarter: 2017Q4

REPORT INFORMATION
  Report Type: Spontaneous
  Country: FR (occurrence: FR)
  Receive Date: 20171018
  Receipt Date: 20171018
  Transmission Date: 20180321
  Serious: Yes (Other)
  Sender: FDA-Public Use
  Company Number: FR-TEVA-816440ROM

PATIENT
  Age: 22 Year
  Sex: Female

DRUGS (1)
  1. LEELOO [Suspect]
     Active Substance: ETHINYL ESTRADIOL\LEVONORGESTREL
     Route: 065

REACTIONS (2)
  - Abortion induced [Unknown]
  - Pregnancy on oral contraceptive [Unknown]
